FAERS Safety Report 18302138 (Version 5)
Quarter: 2021Q3

REPORT INFORMATION
  Report Type: Report from Study
  Country: US (occurrence: US)
  Receive Date: 20200923
  Receipt Date: 20210825
  Transmission Date: 20211014
  Serious: Yes (Disabling, Other)
  Sender: FDA-Public Use
  Company Number: US-BRISTOL-MYERS SQUIBB COMPANY-BMS-2020-076180

PATIENT
  Age: 79 Year
  Sex: Female
  Weight: 65.7 kg

DRUGS (2)
  1. APIXABAN [Suspect]
     Active Substance: APIXABAN
     Indication: CEREBROVASCULAR ACCIDENT PROPHYLAXIS
     Dosage: 2.5 MILLIGRAM
     Route: 048
     Dates: start: 2016
  2. BABY ASPIRIN [Concomitant]
     Active Substance: ASPIRIN
     Indication: PRODUCT USED FOR UNKNOWN INDICATION
     Dosage: UNK
     Route: 065

REACTIONS (14)
  - Musculoskeletal discomfort [Unknown]
  - Paralysis [Unknown]
  - Rheumatoid arthritis [Unknown]
  - Viral infection [Unknown]
  - Condition aggravated [Unknown]
  - Back disorder [Unknown]
  - Neuropathy peripheral [Unknown]
  - Cerebrovascular accident [Unknown]
  - Quality of life decreased [Unknown]
  - Nausea [Unknown]
  - Spinal disorder [Unknown]
  - Paraesthesia [Unknown]
  - Sciatic nerve injury [Unknown]
  - Pain in extremity [Unknown]
